FAERS Safety Report 8598561-4 (Version None)
Quarter: 2012Q3

REPORT INFORMATION
  Report Type: 
  Country: None (occurrence: None)
  Receive Date: 20120816
  Receipt Date: 20120807
  Transmission Date: 20120928
  Serious: Yes (Hospitalization)
  Sender: FDA-Public Use
  Company Number: RU-ASTRAZENECA-2012SE56185

PATIENT
  Sex: Male

DRUGS (2)
  1. METOPROLOL SUCCINATE [Suspect]
     Route: 048
     Dates: start: 20110101
  2. METOPROLOL SUCCINATE [Suspect]
     Indication: HYPERTENSION
     Route: 048
     Dates: end: 20110101

REACTIONS (4)
  - HYPERTENSIVE CRISIS [None]
  - DRUG INEFFECTIVE [None]
  - HEART RATE IRREGULAR [None]
  - BLOOD PRESSURE FLUCTUATION [None]
